FAERS Safety Report 6011498-X (Version None)
Quarter: 2008Q4

REPORT INFORMATION
  Report Type: 
  Country: None (occurrence: None)
  Receive Date: 20081218
  Receipt Date: 19980505
  Transmission Date: 20090506
  Serious: Yes (Death, Life-Threatening, Hospitalization, Congenital Anomaly, Other)
  Sender: FDA-Public Use
  Company Number: US-ROCHE-85676

PATIENT
  Sex: Female
  Weight: 2.8 kg

DRUGS (3)
  1. ACCUTANE [Suspect]
     Route: 015
     Dates: start: 19970725, end: 19970824
  2. TRI-LEVLEN 28 [Concomitant]
     Indication: CONTRACEPTION
     Route: 015
     Dates: end: 19970825
  3. SYNTHROID [Concomitant]
     Route: 015

REACTIONS (27)
  - ANAEMIA NEONATAL [None]
  - CEREBRAL INFARCTION [None]
  - CONGENITAL AORTIC ANOMALY [None]
  - CONGENITAL ARTERIAL MALFORMATION [None]
  - CONGENITAL BRAIN DAMAGE [None]
  - CONGENITAL GASTRIC ANOMALY [None]
  - CONGENITAL OESOPHAGEAL ANOMALY [None]
  - DEATH [None]
  - DEXTROCARDIA [None]
  - DOUBLE OUTLET RIGHT VENTRICLE [None]
  - EAR MALFORMATION [None]
  - HYDROCEPHALUS [None]
  - HYPERBILIRUBINAEMIA NEONATAL [None]
  - MENINGITIS BACTERIAL [None]
  - MICROPHTHALMOS [None]
  - MYOCARDIAL INFARCTION [None]
  - PATENT DUCTUS ARTERIOSUS [None]
  - PERICARDITIS [None]
  - POLYHYDRAMNIOS [None]
  - PREMATURE LABOUR [None]
  - PULMONARY ARTERY STENOSIS CONGENITAL [None]
  - PULMONARY INFARCTION [None]
  - RENAL HAEMORRHAGE [None]
  - SUBARACHNOID HAEMORRHAGE NEONATAL [None]
  - UMBILICAL CORD ABNORMALITY [None]
  - VENTRICULAR HYPOPLASIA [None]
  - VENTRICULAR SEPTAL DEFECT [None]
